FAERS Safety Report 10917983 (Version 3)
Quarter: 2015Q2

REPORT INFORMATION
  Report Type: Report from Study
  Country: US (occurrence: US)
  Receive Date: 20150316
  Receipt Date: 20150406
  Transmission Date: 20150821
  Serious: Yes (Death, Other)
  Sender: FDA-Public Use
  Company Number: US-VERTEX PHARMACEUTICALS-2015-000712

PATIENT
  Age: 33 Year
  Sex: Male
  Weight: 61 kg

DRUGS (20)
  1. ADVAIR HFA [Concomitant]
     Active Substance: FLUTICASONE PROPIONATE\SALMETEROL XINAFOATE
     Indication: CYSTIC FIBROSIS LUNG
     Dosage: 1 PUFF, BID
     Route: 055
  2. ZOLPIDEM [Concomitant]
     Active Substance: ZOLPIDEM\ZOLPIDEM TARTRATE
     Indication: INSOMNIA
     Dosage: 5 MG, PRN
     Route: 048
  3. NASONEX [Concomitant]
     Active Substance: MOMETASONE FUROATE
     Indication: RHINITIS ALLERGIC
  4. CREON 24 [Concomitant]
     Active Substance: AMYLASE\LIPASE\PROTEASE
     Dosage: 3 CAPS W/SNACKS
     Route: 048
  5. SERTRALINE [Concomitant]
     Active Substance: SERTRALINE HYDROCHLORIDE
     Indication: ANXIETY
     Dosage: 25 MG, QD
     Route: 048
  6. COMBIVENT DUO-NEB [Concomitant]
     Indication: CYSTIC FIBROSIS LUNG
     Dosage: 1 PUFF BID PRN
     Route: 055
     Dates: end: 20150305
  7. VX-809 FDC [Suspect]
     Active Substance: IVACAFTOR
     Indication: CYSTIC FIBROSIS
     Dosage: 400 MG, BID
     Route: 048
     Dates: start: 20150305, end: 20150309
  8. IPRATROPIUM BROMIDE AND ALBUTEROL SULFATE [Concomitant]
     Active Substance: ALBUTEROL SULFATE\IPRATROPIUM BROMIDE
     Indication: CYSTIC FIBROSIS LUNG
     Dosage: 3.0 ML, BID
     Route: 055
  9. AZITHROMYCIN [Concomitant]
     Active Substance: AZITHROMYCIN ANHYDROUS
     Indication: BACTERIAL DISEASE CARRIER
     Dosage: 500 MG, 3 PER WEEK
     Route: 048
  10. COMBIVENT DUO-NEB [Concomitant]
     Dosage: 4 PUFFS OR MORE PRN
     Route: 055
     Dates: start: 20150306
  11. VX-770 FDC [Suspect]
     Active Substance: IVACAFTOR
     Indication: CYSTIC FIBROSIS
     Dosage: 250 MG, BID
     Route: 048
     Dates: start: 20150305, end: 20150309
  12. HYPERSAL [Concomitant]
     Indication: CYSTIC FIBROSIS LUNG
     Dosage: 4.0 ML, BID
     Route: 055
  13. ATENOLOL. [Concomitant]
     Active Substance: ATENOLOL
     Indication: HYPERTENSION
     Dosage: 50 MG, QD
     Route: 048
  14. CREON 24 [Concomitant]
     Active Substance: AMYLASE\LIPASE\PROTEASE
     Indication: PANCREATIC INSUFFICIENCY
     Dosage: 5 CAPS/MEAL
     Route: 048
  15. NASONEX [Concomitant]
     Active Substance: MOMETASONE FUROATE
     Indication: CHRONIC SINUSITIS
     Dosage: 2 SPRAYS, QD
     Route: 045
  16. COMBIVENT DUO-NEB [Concomitant]
     Dosage: 1 PUFF TID PRN
     Route: 055
     Dates: start: 20150305, end: 20150305
  17. ZYRTEC [Concomitant]
     Active Substance: CETIRIZINE HYDROCHLORIDE
     Indication: SEASONAL ALLERGY
     Dosage: 10 MG, QD
     Route: 048
     Dates: start: 20150301, end: 20150301
  18. PULMOZYME [Concomitant]
     Active Substance: DORNASE ALFA
     Indication: CYSTIC FIBROSIS LUNG
     Dosage: 2.5 ML, BID
     Route: 055
  19. PRILOSEC [Concomitant]
     Active Substance: OMEPRAZOLE MAGNESIUM
     Indication: GASTROOESOPHAGEAL REFLUX DISEASE
     Route: 048
  20. PREDNISONE. [Concomitant]
     Active Substance: PREDNISONE
     Indication: HAEMOPTYSIS
     Dosage: 5 MG QD TAPER
     Route: 048
     Dates: start: 20150125, end: 20150228

REACTIONS (8)
  - Respiration abnormal [Recovered/Resolved]
  - Nausea [None]
  - Chest discomfort [None]
  - Haemoptysis [Fatal]
  - Abdominal distension [None]
  - Dyspnoea [None]
  - Choking sensation [None]
  - Eructation [None]

NARRATIVE: CASE EVENT DATE: 20150305
